FAERS Safety Report 22616171 (Version 1)
Quarter: 2023Q2

REPORT INFORMATION
  Report Type: Other
  Country: None (occurrence: US)
  Receive Date: 20230619
  Receipt Date: 20230619
  Transmission Date: 20230721
  Serious: Yes (Other)
  Sender: FDA-Public Use
  Company Number: US-B.Braun Medical Inc.-2142846

PATIENT
  Age: 24 Year
  Sex: Female

DRUGS (5)
  1. METRONIDAZOLE [Suspect]
     Active Substance: METRONIDAZOLE
     Indication: Infection
  2. CIPROFLOXACIN [Suspect]
     Active Substance: CIPROFLOXACIN
  3. ADALIMUMAB [Concomitant]
     Active Substance: ADALIMUMAB
  4. INFLIXIMAB [Concomitant]
     Active Substance: INFLIXIMAB
  5. AZATHIOPRINE [Concomitant]
     Active Substance: AZATHIOPRINE

REACTIONS (1)
  - Drug ineffective [Unknown]
